FAERS Safety Report 11862093 (Version 1)
Quarter: 2015Q4

REPORT INFORMATION
  Report Type: Spontaneous
  Country: US (occurrence: None)
  Receive Date: 20151222
  Receipt Date: 20151222
  Transmission Date: 20160305
  Serious: Yes (Hospitalization)
  Sender: FDA-Public Use
  Company Number: None

PATIENT
  Age: 68 Year
  Sex: Male

DRUGS (2)
  1. FLECAINIDE [Suspect]
     Active Substance: FLECAINIDE
  2. FLECAINIDE [Suspect]
     Active Substance: FLECAINIDE
     Indication: ATRIAL FIBRILLATION
     Dosage: TWO 50MG TABS
     Route: 048
     Dates: start: 200412, end: 200612

REACTIONS (3)
  - Atrial fibrillation [None]
  - Cerebrovascular accident [None]
  - Product substitution issue [None]

NARRATIVE: CASE EVENT DATE: 20151206
